FAERS Safety Report 18849580 (Version 1)
Quarter: 2021Q1

REPORT INFORMATION
  Report Type: Spontaneous
  Country: HU (occurrence: HU)
  Receive Date: 20210204
  Receipt Date: 20210204
  Transmission Date: 20210419
  Serious: Yes (Death, Other)
  Sender: FDA-Public Use
  Company Number: HU-ALXN-A202101557

PATIENT
  Age: 29 Year
  Sex: Male

DRUGS (1)
  1. SOLIRIS [Suspect]
     Active Substance: ECULIZUMAB
     Indication: MYASTHENIA GRAVIS
     Route: 065

REACTIONS (2)
  - Haemophagocytic lymphohistiocytosis [Fatal]
  - Cytomegalovirus infection [Unknown]
